FAERS Safety Report 5315047-0 (Version None)
Quarter: 2007Q2

REPORT INFORMATION
  Report Type: 
  Country: None (occurrence: None)
  Receive Date: 20070502
  Receipt Date: 20070427
  Transmission Date: 20071010
  Serious: Yes (Death)
  Sender: FDA-Public Use
  Company Number: 2007AP02291

PATIENT
  Age: 813 Month
  Sex: Female

DRUGS (11)
  1. SEROQUEL [Suspect]
     Indication: CONFUSIONAL STATE
     Route: 048
     Dates: start: 20070222, end: 20070223
  2. SEROQUEL [Suspect]
     Route: 048
     Dates: start: 20070223
  3. FLUNITRAZEPAM [Suspect]
  4. LEVOTOMIN [Suspect]
     Indication: ANXIETY
     Route: 048
     Dates: start: 20070219, end: 20070222
  5. LEVOTOMIN [Suspect]
     Indication: RESTLESSNESS
     Route: 048
     Dates: start: 20070219, end: 20070222
  6. LEVOTOMIN [Suspect]
     Route: 048
     Dates: start: 20070223
  7. LEVOTOMIN [Suspect]
     Route: 048
     Dates: start: 20070223
  8. TOLEDOMIN [Suspect]
     Indication: ANXIETY
     Route: 048
     Dates: start: 20070219, end: 20070222
  9. TOLEDOMIN [Suspect]
     Indication: DEPRESSION
     Route: 048
     Dates: start: 20070219, end: 20070222
  10. U-PAN [Suspect]
     Indication: ANXIETY
     Route: 048
     Dates: start: 20070219
  11. U-PAN [Suspect]
     Indication: RESTLESSNESS
     Route: 048
     Dates: start: 20070219

REACTIONS (1)
  - SUDDEN DEATH [None]
